FAERS Safety Report 8490196-7 (Version None)
Quarter: 2012Q3

REPORT INFORMATION
  Report Type: 
  Country: None (occurrence: None)
  Receive Date: 20120705
  Receipt Date: 20110804
  Transmission Date: 20120928
  Serious: No
  Sender: FDA-Public Use
  Company Number: US-BAUSCH-2011BL005122

PATIENT
  Age: 85 Year
  Sex: Male

DRUGS (1)
  1. OPCON-A [Suspect]
     Indication: EYE PRURITUS
     Route: 047
     Dates: start: 20110802, end: 20110802

REACTIONS (2)
  - EYELID OEDEMA [None]
  - RASH MACULAR [None]
